FAERS Safety Report 20162705 (Version 2)
Quarter: 2022Q1

REPORT INFORMATION
  Report Type: Report from Study
  Country: US (occurrence: US)
  Receive Date: 20211208
  Receipt Date: 20220301
  Transmission Date: 20220424
  Serious: Yes (Other)
  Sender: FDA-Public Use
  Company Number: US-ABBVIE-21K-163-4187407-00

PATIENT
  Sex: Female

DRUGS (5)
  1. SKYRIZI [Suspect]
     Active Substance: RISANKIZUMAB-RZAA
     Indication: Psoriasis
     Dosage: TWO 75 MILLIGRAM SYRINGE
     Route: 058
     Dates: end: 2021
  2. SKYRIZI [Suspect]
     Active Substance: RISANKIZUMAB-RZAA
     Route: 058
     Dates: start: 2021
  3. MODERNA COVID-19 VACCINE [Suspect]
     Active Substance: ELASOMERAN
     Indication: COVID-19 immunisation
     Dosage: 1ST DOSE
     Route: 030
     Dates: start: 20210602, end: 20210602
  4. MODERNA COVID-19 VACCINE [Suspect]
     Active Substance: ELASOMERAN
     Dosage: 2ND DOSE
     Route: 030
     Dates: start: 20210705, end: 20210705
  5. MODERNA COVID-19 VACCINE [Suspect]
     Active Substance: ELASOMERAN
     Dosage: BOOSTER DOSE
     Route: 030

REACTIONS (16)
  - Pulmonary hypertension [Recovering/Resolving]
  - Rosacea [Recovering/Resolving]
  - Hypertension [Unknown]
  - Irritable bowel syndrome [Not Recovered/Not Resolved]
  - Fear of injection [Not Recovered/Not Resolved]
  - Motion sickness [Unknown]
  - Stress [Unknown]
  - Malaise [Recovered/Resolved]
  - Psoriasis [Recovered/Resolved]
  - Headache [Recovered/Resolved]
  - Injection site bruising [Recovering/Resolving]
  - Vaccination site pain [Recovering/Resolving]
  - Vaccination site discomfort [Recovering/Resolving]
  - Vaccination complication [Unknown]
  - Coagulopathy [Unknown]
  - Increased tendency to bruise [Unknown]

NARRATIVE: CASE EVENT DATE: 20200101
